FAERS Safety Report 6294260-2 (Version None)
Quarter: 2009Q3

REPORT INFORMATION
  Report Type: 
  Country: None (occurrence: None)
  Receive Date: 20090803
  Receipt Date: 20090414
  Transmission Date: 20100115
  Serious: No
  Sender: FDA-Public Use
  Company Number: A0778669A

PATIENT
  Age: 53 Year

DRUGS (1)
  1. NICORETTE [Suspect]
     Indication: SLEEP DISORDER
     Dates: start: 20090323, end: 20090401

REACTIONS (2)
  - INTENTIONAL DRUG MISUSE [None]
  - TOOTH DISCOLOURATION [None]
